FAERS Safety Report 7904460 (Version 4)
Quarter: 2012Q4

REPORT INFORMATION
  Report Type: 
  Country: CA (occurrence: CA)
  Receive Date: 20110419
  Receipt Date: 20121031
  Transmission Date: 20130627
  Serious: Yes (Death, Other)
  Sender: FDA-Public Use
  Company Number: PHHY2010CA25826

PATIENT
  Age: 56 Year
  Sex: Female

DRUGS (3)
  1. ZOMETA [Suspect]
     Indication: BREAST CANCER METASTATIC
     Dosage: 4 mg every three weeks
     Dates: start: 20100414, end: 20120517
  2. ZOMETA [Suspect]
     Dosage: 4 mg every 4 weeks
  3. ZOMETA [Suspect]
     Dosage: 4 mg every three weeks
     Dates: end: 20120503

REACTIONS (19)
  - Death [Fatal]
  - Heart rate increased [Unknown]
  - Blood potassium decreased [Unknown]
  - Blood sodium decreased [Unknown]
  - Blood chloride decreased [Unknown]
  - Aspartate aminotransferase increased [Unknown]
  - Blood alkaline phosphatase increased [Unknown]
  - Blood lactate dehydrogenase increased [Unknown]
  - Blood albumin decreased [Unknown]
  - Mean cell haemoglobin concentration increased [Unknown]
  - Blood phosphorus increased [Unknown]
  - Blood calcium decreased [Unknown]
  - Red cell distribution width increased [Unknown]
  - Red blood cell count decreased [Unknown]
  - Mean platelet volume decreased [Unknown]
  - Lymphocyte count decreased [Unknown]
  - Haematocrit decreased [Unknown]
  - Haemoglobin decreased [Unknown]
  - Blood pressure increased [Unknown]
